FAERS Safety Report 25396198 (Version 1)
Quarter: 2025Q2

REPORT INFORMATION
  Report Type: Spontaneous
  Country: CH (occurrence: CH)
  Receive Date: 20250604
  Receipt Date: 20250604
  Transmission Date: 20250716
  Serious: Yes (Hospitalization)
  Sender: MYLAN
  Company Number: None

PATIENT
  Age: 18 Year
  Sex: Female

DRUGS (11)
  1. PREGABALIN [Suspect]
     Active Substance: PREGABALIN
     Indication: Product used for unknown indication
     Dates: start: 20240406, end: 20240406
  2. PREGABALIN [Suspect]
     Active Substance: PREGABALIN
     Dosage: 75 MILLIGRAM, BID ( 75 MG IN THE MORNING, 75 MG IN THE EVENING)
     Dates: end: 20240406
  3. XANAX [Suspect]
     Active Substance: ALPRAZOLAM
     Indication: Product used for unknown indication
     Dates: start: 20240406, end: 20240406
  4. XANAX [Suspect]
     Active Substance: ALPRAZOLAM
     Dosage: 2 MILLIGRAM, BID (2 MG IN THE MORNING, 2 MG IN THE EVENING)
     Dates: end: 20240406
  5. XANAX [Suspect]
     Active Substance: ALPRAZOLAM
  6. ZYPREXA [Suspect]
     Active Substance: OLANZAPINE
     Indication: Product used for unknown indication
  7. ATARAX [Concomitant]
     Active Substance: HYDROXYZINE HYDROCHLORIDE
  8. KETAMINE [Concomitant]
     Active Substance: KETAMINE
  9. MIDOMAFETAMINE [Concomitant]
     Active Substance: MIDOMAFETAMINE
  10. COCAINE [Concomitant]
     Active Substance: COCAINE
  11. HERBALS\TETRAHYDROCANNABINOL UNSPECIFIED [Concomitant]
     Active Substance: HERBALS\TETRAHYDROCANNABINOL UNSPECIFIED

REACTIONS (5)
  - Pupillary reflex impaired [Recovered/Resolved]
  - Respiratory acidosis [Recovered/Resolved]
  - Depressed level of consciousness [Recovered/Resolved]
  - Memory impairment [Not Recovered/Not Resolved]
  - Intentional overdose [Recovered/Resolved]

NARRATIVE: CASE EVENT DATE: 20250406
